FAERS Safety Report 8030116-2 (Version None)
Quarter: 2012Q1

REPORT INFORMATION
  Report Type: 
  Country: None (occurrence: None)
  Receive Date: 20120105
  Receipt Date: 20111221
  Transmission Date: 20120608
  Serious: Yes (Other)
  Sender: FDA-Public Use
  Company Number: 2011P1015088

PATIENT
  Age: 21 Year
  Sex: Female
  Weight: 90.7194 kg

DRUGS (4)
  1. LAMICTAL [Concomitant]
  2. CLOBETASOL PROPIONATE [Suspect]
     Indication: RASH
     Dosage: 1X;TOP
     Route: 061
     Dates: start: 20111219, end: 20111219
  3. DEPO-PROVERA [Concomitant]
  4. BENADRYL [Suspect]
     Dosage: PRN;PO
     Route: 048

REACTIONS (1)
  - CONVULSION [None]
